FAERS Safety Report 11398164 (Version 3)
Quarter: 2015Q4

REPORT INFORMATION
  Report Type: Report from Study
  Country: US (occurrence: US)
  Receive Date: 20150820
  Receipt Date: 20151011
  Transmission Date: 20160304
  Serious: No
  Sender: FDA-Public Use
  Company Number: US-AMGEN-USASP2015082502

PATIENT
  Age: 64 Year
  Sex: Female

DRUGS (1)
  1. ENBREL [Suspect]
     Active Substance: ETANERCEPT
     Indication: PSORIASIS
     Dosage: 50 MG, QWK
     Route: 065
     Dates: start: 20150615, end: 2015

REACTIONS (5)
  - Sinusitis [Not Recovered/Not Resolved]
  - Psoriasis [Recovering/Resolving]
  - Stress [Unknown]
  - Nasopharyngitis [Unknown]
  - Insomnia [Unknown]

NARRATIVE: CASE EVENT DATE: 2015
